FAERS Safety Report 7183974-8 (Version None)
Quarter: 2010Q4

REPORT INFORMATION
  Report Type: 
  Country: None (occurrence: None)
  Receive Date: 20101222
  Receipt Date: 20101220
  Transmission Date: 20110411
  Serious: Yes (Other)
  Sender: FDA-Public Use
  Company Number: CA-ROCHE-749094

PATIENT
  Sex: Female
  Weight: 140 kg

DRUGS (6)
  1. BEVACIZUMAB [Suspect]
     Indication: GLIOBLASTOMA
     Dosage: FORM: INFUSION
     Route: 042
     Dates: start: 20100129
  2. BEVACIZUMAB [Suspect]
     Route: 042
  3. TEMODAL [Concomitant]
  4. DILANTIN [Concomitant]
  5. ZOFRAN [Concomitant]
  6. STEMETIL [Concomitant]

REACTIONS (3)
  - ABDOMINAL DISCOMFORT [None]
  - CONSTIPATION [None]
  - CONVULSION [None]
